FAERS Safety Report 8425076-6 (Version None)
Quarter: 2012Q2

REPORT INFORMATION
  Report Type: 
  Country: None (occurrence: None)
  Receive Date: 20120605
  Receipt Date: 20120605
  Transmission Date: 20120825
  Serious: Yes (Other)
  Sender: FDA-Public Use
  Company Number: None

PATIENT
  Sex: Female
  Weight: 75.2971 kg

DRUGS (7)
  1. POTIGA [Suspect]
     Indication: CONVULSION
     Dosage: 100 MG TID PO
     Route: 048
  2. DEPAKOTE [Concomitant]
  3. SEROQUEL [Concomitant]
  4. VIMPAT [Concomitant]
  5. AMBIEN [Concomitant]
  6. IMITREX [Concomitant]
  7. SYNTHROID [Concomitant]

REACTIONS (3)
  - DYSURIA [None]
  - URINE ABNORMALITY [None]
  - URINE OUTPUT DECREASED [None]
